FAERS Safety Report 18981628 (Version 1)
Quarter: 2021Q1

REPORT INFORMATION
  Report Type: Spontaneous
  Country: US (occurrence: US)
  Receive Date: 20210308
  Receipt Date: 20210308
  Transmission Date: 20210420
  Serious: Yes (Death, Hospitalization, Other)
  Sender: FDA-Public Use
  Company Number: US-APOTEX-2021AP004816

PATIENT
  Age: 55 Year
  Sex: Female

DRUGS (1)
  1. AMLODIPINE [Suspect]
     Active Substance: AMLODIPINE BESYLATE
     Indication: PRODUCT USED FOR UNKNOWN INDICATION
     Dosage: UNK (HALF A BOTTLE )
     Route: 048

REACTIONS (5)
  - Overdose [Fatal]
  - Circulatory collapse [Fatal]
  - Cardiac failure [Fatal]
  - Toxicity to various agents [Fatal]
  - Respiratory failure [Fatal]
